FAERS Safety Report 6262707-3 (Version None)
Quarter: 2009Q3

REPORT INFORMATION
  Report Type: 
  Country: None (occurrence: None)
  Receive Date: 20090708
  Receipt Date: 20090626
  Transmission Date: 20100115
  Serious: Yes (Other)
  Sender: FDA-Public Use
  Company Number: SPV1-2009-01346

PATIENT
  Age: 24 Year
  Sex: Male
  Weight: 95.2 kg

DRUGS (1)
  1. CARBATROL [Suspect]
     Indication: COMPLEX PARTIAL SEIZURES
     Dosage: 500 MG, 2X/DAY: BID, ORAL
     Route: 048
     Dates: start: 20080501

REACTIONS (7)
  - ASTHENIA [None]
  - ASTHMA [None]
  - DRUG HYPERSENSITIVITY [None]
  - FATIGUE [None]
  - HEADACHE [None]
  - HYPOGLYCAEMIA [None]
  - LOSS OF CONSCIOUSNESS [None]
